FAERS Safety Report 15268789 (Version 1)
Quarter: 2018Q3

REPORT INFORMATION
  Report Type: Other
  Country: DE (occurrence: DE)
  Receive Date: 20180813
  Receipt Date: 20180813
  Transmission Date: 20181010
  Serious: Yes (Congenital Anomaly)
  Sender: FDA-Public Use
  Company Number: DE-DEXPHARM-20180574

PATIENT
  Sex: Male
  Weight: 3.92 kg

DRUGS (6)
  1. DICLOFENAC [Suspect]
     Active Substance: DICLOFENAC
  2. IBUPROFEN. [Suspect]
     Active Substance: IBUPROFEN
  3. OMEPRAZOLE. [Suspect]
     Active Substance: OMEPRAZOLE
  4. PARACETAMOL [Suspect]
     Active Substance: ACETAMINOPHEN
  5. LYNESTRENOL [Suspect]
     Active Substance: LYNESTRENOL
  6. LEVOTHYROXINE. [Suspect]
     Active Substance: LEVOTHYROXINE

REACTIONS (7)
  - Cerebral atrophy congenital [Unknown]
  - Pyloric stenosis [Unknown]
  - Splenomegaly [Unknown]
  - Macrocephaly [Unknown]
  - Pupils unequal [Unknown]
  - Foetal exposure during pregnancy [Unknown]
  - Atrial septal defect [Unknown]
